FAERS Safety Report 4695655-0 (Version None)
Quarter: 2005Q2

REPORT INFORMATION
  Report Type: 
  Country: None (occurrence: None)
  Receive Date: 20050621
  Receipt Date: 20050608
  Transmission Date: 20051028
  Serious: Yes (Hospitalization)
  Sender: FDA-Public Use
  Company Number: 200511942FR

PATIENT
  Age: 75 Year
  Sex: Female

DRUGS (9)
  1. PYRAZINAMIDE [Suspect]
     Indication: BONE TUBERCULOSIS
     Route: 048
     Dates: start: 20050321, end: 20050422
  2. RIFADIN [Suspect]
     Indication: BONE TUBERCULOSIS
     Route: 048
     Dates: start: 20050321, end: 20050428
  3. RIMIFON [Suspect]
     Indication: BONE TUBERCULOSIS
     Route: 048
     Dates: start: 20050321, end: 20050424
  4. AUGMENTIN '125' [Concomitant]
     Route: 048
     Dates: start: 20050307, end: 20050411
  5. OFLOCET [Concomitant]
     Route: 048
     Dates: start: 20050409, end: 20050411
  6. ROCEPHIN [Concomitant]
     Route: 048
     Dates: start: 20050222, end: 20050303
  7. RULID [Concomitant]
     Route: 048
     Dates: start: 20050222, end: 20050307
  8. ORELOX [Concomitant]
     Route: 048
     Dates: start: 20050303, end: 20050307
  9. TAVANIC [Concomitant]
     Route: 048
     Dates: start: 20050411, end: 20050420

REACTIONS (9)
  - CHOLESTASIS [None]
  - CYTOLYTIC HEPATITIS [None]
  - DERMATITIS ALLERGIC [None]
  - DRUG RASH WITH EOSINOPHILIA AND SYSTEMIC SYMPTOMS [None]
  - EOSINOPHILIA [None]
  - HEPATIC FAILURE [None]
  - LIVER DISORDER [None]
  - PYREXIA [None]
  - SKIN EXFOLIATION [None]
